FAERS Safety Report 5429854-7 (Version None)
Quarter: 2007Q3

REPORT INFORMATION
  Report Type: 
  Country: None (occurrence: None)
  Receive Date: 20070829
  Receipt Date: 20070819
  Transmission Date: 20080115
  Serious: Yes (Other)
  Sender: FDA-Public Use
  Company Number: US-PFIZER INC-2007069363

PATIENT
  Sex: Female
  Weight: 72.727 kg

DRUGS (9)
  1. CELEBREX [Suspect]
     Indication: OSTEOARTHRITIS
  2. DETROL LA [Suspect]
     Indication: INCONTINENCE
  3. PROTONIX [Concomitant]
  4. PAXIL [Concomitant]
  5. MONTELUKAST SODIUM [Concomitant]
  6. ZOCOR [Concomitant]
  7. VITAMIN CAP [Concomitant]
  8. CALCIUM [Concomitant]
  9. FLONASE [Concomitant]

REACTIONS (6)
  - ARTHROSCOPIC SURGERY [None]
  - EYE LASER SURGERY [None]
  - INSOMNIA [None]
  - KNEE ARTHROPLASTY [None]
  - NERVOUSNESS [None]
  - VISION BLURRED [None]
